FAERS Safety Report 19767344 (Version 1)
Quarter: 2021Q3

REPORT INFORMATION
  Report Type: Spontaneous
  Country: US (occurrence: US)
  Receive Date: 20210830
  Receipt Date: 20210830
  Transmission Date: 20211014
  Serious: Yes (Other)
  Sender: FDA-Public Use
  Company Number: None

PATIENT
  Age: 40 Year
  Sex: Female
  Weight: 98.55 kg

DRUGS (10)
  1. AMBIEM 10MG [Concomitant]
  2. ADDERALL XR 40MG [Concomitant]
  3. ACETAMINOPHEN. [Concomitant]
     Active Substance: ACETAMINOPHEN
  4. PREVACID 30MG [Concomitant]
  5. ZANAFLEX [Concomitant]
     Active Substance: TIZANIDINE HYDROCHLORIDE
  6. VYEPTI [Suspect]
     Active Substance: EPTINEZUMAB-JJMR
     Indication: MIGRAINE
     Dosage: ?          QUANTITY:1 INJECTION(S);OTHER FREQUENCY:EVERY 3 MONTHS;?
     Route: 042
  7. ICY?HOT ROLL ON [Concomitant]
  8. AIMOVIG [Suspect]
     Active Substance: ERENUMAB-AOOE
     Indication: MIGRAINE
     Dosage: ?          OTHER FREQUENCY:1 MONTHLY;?
     Route: 058
     Dates: start: 20190808, end: 20201108
  9. CODEINE 300 ? 15MG TAB [Concomitant]
  10. ESTRACE 2MG [Concomitant]

REACTIONS (15)
  - Hypertension [None]
  - Vomiting [None]
  - Myalgia [None]
  - Arthralgia [None]
  - Injection site scar [None]
  - Dizziness [None]
  - Urticaria [None]
  - Pyrexia [None]
  - Heart rate increased [None]
  - Kidney infection [None]
  - Weight increased [None]
  - Cystitis [None]
  - Renal artery stent placement [None]
  - Blister [None]
  - Cardiac ablation [None]

NARRATIVE: CASE EVENT DATE: 20200802
